FAERS Safety Report 11308299 (Version 2)
Quarter: 2015Q3

REPORT INFORMATION
  Report Type: Spontaneous
  Country: KR (occurrence: KR)
  Receive Date: 20150724
  Receipt Date: 20150825
  Transmission Date: 20151125
  Serious: Yes (Hospitalization, Other)
  Sender: FDA-Public Use
  Company Number: KR-ASTRAZENECA-2015SE69428

PATIENT

DRUGS (4)
  1. FORXIGA [Suspect]
     Active Substance: DAPAGLIFLOZIN
     Indication: ADJUVANT THERAPY
     Route: 048
     Dates: start: 201504, end: 20150616
  2. MET [Concomitant]
  3. SU [Concomitant]
  4. DPP4I [Concomitant]

REACTIONS (2)
  - Diabetic ketoacidosis [Recovered/Resolved]
  - Enteritis [Recovered/Resolved]

NARRATIVE: CASE EVENT DATE: 20150626
